FAERS Safety Report 11497234 (Version 2)
Quarter: 2015Q4

REPORT INFORMATION
  Report Type: Report from Study
  Country: US (occurrence: US)
  Receive Date: 20150911
  Receipt Date: 20151002
  Transmission Date: 20160304
  Serious: Yes (Hospitalization)
  Sender: FDA-Public Use
  Company Number: US-PFIZER INC-2015295814

PATIENT
  Age: 8 Year
  Sex: Male
  Weight: 38.9 kg

DRUGS (2)
  1. INLYTA [Suspect]
     Active Substance: AXITINIB
     Dosage: 1.8 MG/M2, UNK
     Dates: start: 20150807, end: 20150831
  2. INLYTA [Suspect]
     Active Substance: AXITINIB
     Indication: OSTEOSARCOMA
     Dosage: 2.4 MG/M2, CYCLIC
     Dates: start: 20150512

REACTIONS (1)
  - Pneumothorax [Recovered/Resolved]

NARRATIVE: CASE EVENT DATE: 20150901
